FAERS Safety Report 21628460 (Version 1)
Quarter: 2022Q4

REPORT INFORMATION
  Report Type: Other
  Country: None (occurrence: US)
  Receive Date: 20221122
  Receipt Date: 20221122
  Transmission Date: 20230113
  Serious: Yes (Life-Threatening, Hospitalization, Other)
  Sender: FDA-Public Use
  Company Number: US-B.Braun Medical Inc.-2135149

PATIENT
  Age: 27 Year
  Sex: Female

DRUGS (1)
  1. LIDOCAINE HYDROCHLORIDE [Suspect]
     Active Substance: LIDOCAINE HYDROCHLORIDE

REACTIONS (11)
  - Exposure during pregnancy [Recovering/Resolving]
  - Anaesthetic complication [Recovering/Resolving]
  - Pneumocephalus [Recovering/Resolving]
  - Loss of consciousness [Recovering/Resolving]
  - Cardiac arrest [Recovering/Resolving]
  - Bradycardia [Recovering/Resolving]
  - Diastolic hypotension [Recovering/Resolving]
  - Unresponsive to stimuli [Recovering/Resolving]
  - Headache [Recovering/Resolving]
  - Back pain [Recovering/Resolving]
  - Dizziness [Recovering/Resolving]
